FAERS Safety Report 7501629-4 (Version None)
Quarter: 2011Q2

REPORT INFORMATION
  Report Type: 
  Country: None (occurrence: None)
  Receive Date: 20110524
  Receipt Date: 20110517
  Transmission Date: 20111010
  Serious: Yes (Hospitalization)
  Sender: FDA-Public Use
  Company Number: US-GILEAD-2011-0036576

PATIENT
  Sex: Female
  Weight: 57.204 kg

DRUGS (9)
  1. LETAIRIS [Suspect]
     Indication: PULMONARY HYPERTENSION
     Route: 048
     Dates: start: 20090514
  2. ATENOLOL [Concomitant]
  3. ASPIRIN [Concomitant]
  4. NEXIUM [Concomitant]
  5. NORVASC [Concomitant]
  6. ZOLOFT [Concomitant]
  7. REVATIO [Concomitant]
     Indication: PULMONARY HYPERTENSION
  8. XANAX [Concomitant]
     Indication: ANXIETY
  9. REMODULIN [Concomitant]
     Indication: PULMONARY HYPERTENSION

REACTIONS (2)
  - FLUID OVERLOAD [None]
  - CARDIAC FAILURE [None]
